FAERS Safety Report 7098849-2 (Version None)
Quarter: 2010Q4

REPORT INFORMATION
  Report Type: 
  Country: None (occurrence: None)
  Receive Date: 20101112
  Receipt Date: 20101103
  Transmission Date: 20110411
  Serious: Yes (Other)
  Sender: FDA-Public Use
  Company Number: US-ROCHE-739211

PATIENT
  Sex: Female

DRUGS (2)
  1. ACTEMRA [Suspect]
     Dosage: INFUSION
     Route: 065
  2. ACTEMRA [Suspect]
     Dosage: INFUSION
     Route: 065

REACTIONS (1)
  - COLITIS ISCHAEMIC [None]
